FAERS Safety Report 21855484 (Version 1)
Quarter: 2023Q1

REPORT INFORMATION
  Report Type: Spontaneous
  Country: TW (occurrence: TW)
  Receive Date: 20230112
  Receipt Date: 20230112
  Transmission Date: 20230418
  Serious: Yes (Other)
  Sender: FDA-Public Use
  Company Number: TW-009507513-2301TWN001838

PATIENT
  Age: 47 Year
  Sex: Male

DRUGS (1)
  1. PEMBROLIZUMAB [Suspect]
     Active Substance: PEMBROLIZUMAB
     Indication: Oesophageal carcinoma
     Dosage: 100 MILLIGRAM, Q3WX 6 CYCLE
     Dates: start: 201908

REACTIONS (3)
  - Oesophageal ulcer [Unknown]
  - Inflammation [Unknown]
  - Product use issue [Unknown]

NARRATIVE: CASE EVENT DATE: 20190801
